FAERS Safety Report 8239649-7 (Version None)
Quarter: 2012Q1

REPORT INFORMATION
  Report Type: 
  Country: None (occurrence: None)
  Receive Date: 20120328
  Receipt Date: 20120320
  Transmission Date: 20120608
  Serious: Yes (Other)
  Sender: FDA-Public Use
  Company Number: SE-UCBSA-053797

PATIENT
  Age: 42 Year
  Sex: Female

DRUGS (2)
  1. CIMZIA [Suspect]
     Indication: RHEUMATOID ARTHRITIS
     Dosage: 200, 200 MG
     Route: 058
     Dates: start: 20120120, end: 20120228
  2. PREDNISOLONE [Concomitant]
     Dosage: 5 MG, 5MG
     Dates: start: 20081007

REACTIONS (1)
  - ANGIOEDEMA [None]
